FAERS Safety Report 16199906 (Version 2)
Quarter: 2019Q2

REPORT INFORMATION
  Report Type: Spontaneous
  Country: AU (occurrence: AU)
  Receive Date: 20190415
  Receipt Date: 20190604
  Transmission Date: 20190711
  Serious: Yes (Hospitalization, Other)
  Sender: FDA-Public Use
  Company Number: AU-009507513-1904AUS005288

PATIENT
  Age: 68 Year
  Sex: Male

DRUGS (2)
  1. PEMBROLIZUMAB. [Suspect]
     Active Substance: PEMBROLIZUMAB
     Indication: NON-SMALL CELL LUNG CANCER STAGE IV
     Dosage: 200 MILLIGRAM, Q3W
     Dates: start: 20180426, end: 20180830
  2. PEMBROLIZUMAB. [Suspect]
     Active Substance: PEMBROLIZUMAB
     Dosage: 200 MILLIGRAM, Q3W
     Dates: start: 2018

REACTIONS (6)
  - Pulmonary embolism [Unknown]
  - Acute kidney injury [Recovered/Resolved]
  - Pyrexia [Unknown]
  - Tubulointerstitial nephritis [Recovered/Resolved]
  - Malignant neoplasm progression [Recovering/Resolving]
  - Sarcoidosis [Unknown]

NARRATIVE: CASE EVENT DATE: 2018
